FAERS Safety Report 9249858 (Version 1)
Quarter: 2013Q2

REPORT INFORMATION
  Report Type: Spontaneous
  Country: US (occurrence: US)
  Receive Date: 20130423
  Receipt Date: 20130423
  Transmission Date: 20140414
  Serious: No
  Sender: FDA-Public Use
  Company Number: US-009507513-1304USA013373

PATIENT
  Age: 65 Year
  Sex: Male
  Weight: 126.98 kg

DRUGS (3)
  1. CLARITIN [Suspect]
     Indication: HYPERSENSITIVITY
     Dosage: 20 MG, ONCE
     Route: 048
     Dates: start: 20130330
  2. CLARITIN [Suspect]
     Indication: NASOPHARYNGITIS
  3. INSULIN [Concomitant]
     Indication: DIABETES MELLITUS
     Dosage: UNK, UNKNOWN

REACTIONS (2)
  - Accidental overdose [Not Recovered/Not Resolved]
  - No adverse event [Not Recovered/Not Resolved]
